FAERS Safety Report 22018659 (Version 4)
Quarter: 2023Q2

REPORT INFORMATION
  Report Type: Report from Study
  Country: GB (occurrence: GB)
  Receive Date: 20230222
  Receipt Date: 20230530
  Transmission Date: 20230722
  Serious: Yes (Hospitalization, Other)
  Sender: FDA-Public Use
  Company Number: GB-CELLTRION INC.-2023GB002743

PATIENT

DRUGS (16)
  1. BEVACIZUMAB [Suspect]
     Active Substance: BEVACIZUMAB
     Indication: Hepatocellular carcinoma
     Dosage: 1200 MG
     Route: 065
     Dates: start: 20221110
  2. ATEZOLIZUMAB [Suspect]
     Active Substance: ATEZOLIZUMAB
     Indication: Hepatocellular carcinoma
     Dosage: 1200 MG, EVERY 3 WEEKS DOSE OF LAST STUDY DRUG ADMINISTERED PRIOR TO SAE : 1200 MG.
     Route: 042
     Dates: start: 20221110
  3. ASPIRIN [Concomitant]
     Active Substance: ASPIRIN
     Dosage: 75 MG, QD
     Route: 065
     Dates: start: 20050513, end: 202301
  4. BISOPROLOL [Concomitant]
     Active Substance: BISOPROLOL
     Dosage: DOSE: 1, QD
     Route: 065
     Dates: start: 20220801
  5. EDOXABAN [Concomitant]
     Active Substance: EDOXABAN
     Dosage: DOSE: 2, QD
     Route: 065
     Dates: start: 20220925, end: 202301
  6. INDAPAMIDE [Concomitant]
     Active Substance: INDAPAMIDE
     Dosage: DOSE: 1, QD
     Route: 065
     Dates: start: 20060330
  7. LANSOPRAZOLE [Concomitant]
     Active Substance: LANSOPRAZOLE
     Dosage: DOSE: 1, QD
     Route: 065
     Dates: start: 20220925
  8. LISINOPRIL [Concomitant]
     Active Substance: LISINOPRIL
     Dosage: DOSE: 1, QD
     Route: 065
     Dates: start: 20100202
  9. METFORMIN [Concomitant]
     Active Substance: METFORMIN HYDROCHLORIDE
     Dosage: DOSE: 1, QD
     Route: 065
     Dates: start: 20050322
  10. NIFEDIPINE [Concomitant]
     Active Substance: NIFEDIPINE
     Dosage: DOSE: 1, QD
     Route: 065
     Dates: start: 20220925
  11. PIOGLITAZONE [Concomitant]
     Active Substance: PIOGLITAZONE
     Dosage: DOSE: 1, QD
     Route: 065
     Dates: start: 20070413, end: 202301
  12. SIMVASTATIN [Concomitant]
     Active Substance: SIMVASTATIN
     Dosage: DOSE: 1, QD
     Route: 065
     Dates: start: 20070214, end: 202301
  13. COVID-19 vaccine [Concomitant]
  14. ATORVASTATIN [Concomitant]
     Active Substance: ATORVASTATIN
     Dosage: UNK
     Route: 065
     Dates: start: 202301
  15. MIDODRINE [Concomitant]
     Active Substance: MIDODRINE
     Dosage: 15 MILLIGRAM, QD
     Route: 065
     Dates: start: 202301
  16. SITAGLIPTIN [Concomitant]
     Active Substance: SITAGLIPTIN
     Dosage: 50 MILLIGRAM
     Route: 065
     Dates: start: 202301

REACTIONS (7)
  - Hypoalbuminaemia [Recovered/Resolved]
  - Epistaxis [Recovered/Resolved]
  - Fatigue [Not Recovered/Not Resolved]
  - Hypotension [Recovered/Resolved]
  - International normalised ratio increased [Recovered/Resolved]
  - Nail disorder [Recovered/Resolved]
  - Intentional product use issue [Unknown]

NARRATIVE: CASE EVENT DATE: 20221110
